FAERS Safety Report 25555740 (Version 1)
Quarter: 2025Q3

REPORT INFORMATION
  Report Type: Spontaneous
  Country: GB (occurrence: GB)
  Receive Date: 20250715
  Receipt Date: 20250715
  Transmission Date: 20251021
  Serious: Yes (Other)
  Sender: Kenvue
  Company Number: GB-Accord-492699

PATIENT

DRUGS (3)
  1. IBUPROFEN [Suspect]
     Active Substance: IBUPROFEN
     Indication: Product used for unknown indication
     Route: 065
  2. QUININE SULFATE [Suspect]
     Active Substance: QUININE SULFATE
     Indication: Product used for unknown indication
     Route: 065
  3. MIRTAZAPINE [Suspect]
     Active Substance: MIRTAZAPINE
     Indication: Product used for unknown indication
     Route: 065

REACTIONS (3)
  - Retinal vascular disorder [Unknown]
  - Blindness [Recovering/Resolving]
  - Intentional overdose [Unknown]
